FAERS Safety Report 19270651 (Version 1)
Quarter: 2021Q2

REPORT INFORMATION
  Report Type: Report from Study
  Country: US (occurrence: US)
  Receive Date: 20210518
  Receipt Date: 20210518
  Transmission Date: 20210717
  Serious: Yes (Other)
  Sender: FDA-Public Use
  Company Number: US-TAKEDA-2021TUS030053

PATIENT
  Sex: Female
  Weight: 81.63 kg

DRUGS (25)
  1. HEPARIN [Concomitant]
     Active Substance: HEPARIN SODIUM
  2. SODIUM CHLORIDE. [Concomitant]
     Active Substance: SODIUM CHLORIDE
  3. CELEBREX [Concomitant]
     Active Substance: CELECOXIB
  4. PANTOPRAZOLE SODIUM. [Concomitant]
     Active Substance: PANTOPRAZOLE SODIUM
  5. VITAMIN D3 [Concomitant]
     Active Substance: CHOLECALCIFEROL
  6. HUMAN NORMAL IMMUNOGLOBULIN; LIQUID [Suspect]
     Active Substance: HUMAN IMMUNOGLOBULIN G
     Indication: SCLERITIS
  7. FLUOXETINE [Concomitant]
     Active Substance: FLUOXETINE HYDROCHLORIDE
  8. FOLIC ACID. [Concomitant]
     Active Substance: FOLIC ACID
  9. EPINEPHRINE. [Concomitant]
     Active Substance: EPINEPHRINE
  10. TYLENOL 8HR [Concomitant]
     Active Substance: ACETAMINOPHEN
  11. HUMAN NORMAL IMMUNOGLOBULIN; LIQUID [Suspect]
     Active Substance: HUMAN IMMUNOGLOBULIN G
     Indication: IRIDOCYCLITIS
     Dosage: 55 GRAM,3DQ4W
     Route: 042
     Dates: start: 20210107
  12. SOLU?MEDROL [Concomitant]
     Active Substance: METHYLPREDNISOLONE SODIUM SUCCINATE
  13. HUMIRA AC [Concomitant]
     Active Substance: ADALIMUMAB
  14. VALTREX [Concomitant]
     Active Substance: VALACYCLOVIR HYDROCHLORIDE
  15. BIOTIN [Concomitant]
     Active Substance: BIOTIN
  16. FLONASE ALLERGY RELIEF [Concomitant]
     Active Substance: FLUTICASONE PROPIONATE
  17. LAMOTRIGINE. [Concomitant]
     Active Substance: LAMOTRIGINE
  18. IMURAN [Concomitant]
     Active Substance: AZATHIOPRINE
  19. BUTOXYCAINE [Concomitant]
  20. VITAMIN C ACID [Concomitant]
     Active Substance: ASCORBIC ACID
  21. ACETAMINOPHEN. [Concomitant]
     Active Substance: ACETAMINOPHEN
  22. DIPHENHYDRAMINE HCL [Concomitant]
     Active Substance: DIPHENHYDRAMINE HYDROCHLORIDE
  23. CLONAZEPAM. [Concomitant]
     Active Substance: CLONAZEPAM
  24. NORMAL SALINE [Concomitant]
     Active Substance: SODIUM CHLORIDE
  25. PRIVIGEN [Concomitant]
     Active Substance: HUMAN IMMUNOGLOBULIN G

REACTIONS (2)
  - Iritis [Unknown]
  - Cellulitis [Unknown]
